FAERS Safety Report 7490138-7 (Version None)
Quarter: 2011Q2

REPORT INFORMATION
  Report Type: 
  Country: None (occurrence: None)
  Receive Date: 20110519
  Receipt Date: 20110513
  Transmission Date: 20111010
  Serious: No
  Sender: FDA-Public Use
  Company Number: US-PFIZER INC-2011103418

PATIENT

DRUGS (3)
  1. TRACLEER [Suspect]
     Dosage: UNK
  2. REVATIO [Suspect]
     Dosage: UNK
  3. TREPROSTINIL SODIUM [Suspect]
     Dosage: UNK

REACTIONS (1)
  - BLOOD ALKALINE PHOSPHATASE INCREASED [None]
